FAERS Safety Report 9706769 (Version 2)
Quarter: 2013Q4

REPORT INFORMATION
  Report Type: Spontaneous
  Country: FR (occurrence: FR)
  Receive Date: 20131125
  Receipt Date: 20131129
  Transmission Date: 20140711
  Serious: Yes (Other)
  Sender: FDA-Public Use
  Company Number: PHHY2013FR133841

PATIENT
  Age: 48 Year
  Sex: Female

DRUGS (3)
  1. GILENYA [Suspect]
     Indication: MULTIPLE SCLEROSIS
     Dosage: 1 DF, QD
     Route: 048
     Dates: start: 201305
  2. VITAMIN D [Concomitant]
  3. DAFALGAN [Concomitant]

REACTIONS (6)
  - Tachypnoea [Unknown]
  - Dyspnoea [Not Recovered/Not Resolved]
  - Hyperoxia [Unknown]
  - Hypocapnia [Unknown]
  - Leukopenia [Not Recovered/Not Resolved]
  - Lymphocyte count decreased [Unknown]
